FAERS Safety Report 8851973 (Version 1)
Quarter: 2012Q4

REPORT INFORMATION
  Report Type: Spontaneous
  Country: IT (occurrence: None)
  Receive Date: 20121017
  Receipt Date: 20121017
  Transmission Date: 20130627
  Serious: Yes (Other)
  Sender: FDA-Public Use
  Company Number: 2012MA011992

PATIENT
  Age: 37 Year
  Sex: Male

DRUGS (1)
  1. MINOXIDIL [Suspect]
     Indication: ANDROGENETIC ALOPECIA
     Route: 061

REACTIONS (7)
  - Chorioretinopathy [None]
  - Scotoma [None]
  - Metamorphopsia [None]
  - Pupillary reflex impaired [None]
  - Macular oedema [None]
  - Retinal oedema [None]
  - Angiogram abnormal [None]
